FAERS Safety Report 17464574 (Version 3)
Quarter: 2023Q1

REPORT INFORMATION
  Report Type: Report from Study
  Country: CO (occurrence: CO)
  Receive Date: 20200226
  Receipt Date: 20230330
  Transmission Date: 20230417
  Serious: Yes (Other)
  Sender: FDA-Public Use
  Company Number: CO-002147023-PHHY2019CO021208

PATIENT

DRUGS (3)
  1. RUXOLITINIB [Suspect]
     Active Substance: RUXOLITINIB
     Indication: Myelofibrosis
     Dosage: 20 MG, QD
     Route: 048
  2. RUXOLITINIB [Suspect]
     Active Substance: RUXOLITINIB
     Dosage: 10 MG, Q12H
     Route: 048
  3. RUXOLITINIB [Suspect]
     Active Substance: RUXOLITINIB
     Dosage: UNK
     Route: 048

REACTIONS (10)
  - Loose tooth [Unknown]
  - Influenza [Unknown]
  - Coagulopathy [Unknown]
  - Traumatic haematoma [Unknown]
  - Fibrin D dimer increased [Unknown]
  - Pain [Unknown]
  - Inappropriate schedule of product administration [Unknown]
  - Epistaxis [Unknown]
  - Illness [Unknown]
  - Nasal congestion [Unknown]
